FAERS Safety Report 11639265 (Version 1)
Quarter: 2015Q4

REPORT INFORMATION
  Report Type: Spontaneous
  Country: JP (occurrence: JP)
  Receive Date: 20151019
  Receipt Date: 20151019
  Transmission Date: 20160304
  Serious: Yes (Other)
  Sender: FDA-Public Use
  Company Number: JP-ACCORD-034604

PATIENT
  Age: 66 Year
  Sex: Female

DRUGS (2)
  1. FUROSEMIDE. [Suspect]
     Active Substance: FUROSEMIDE
     Indication: PRODUCT USED FOR UNKNOWN INDICATION
     Route: 040
  2. CISPLATIN. [Suspect]
     Active Substance: CISPLATIN
     Indication: CERVIX CARCINOMA
     Dosage: 3 L INFUSION SOLUTION GIVEN AS INTRAVENOUS DRIP INFUSION, FOLLOWED BY 2 L SOLUTION ON NEXT DAY
     Route: 041

REACTIONS (1)
  - Ureteric rupture [Unknown]
